FAERS Safety Report 7001795-3 (Version None)
Quarter: 2010Q3

REPORT INFORMATION
  Report Type: 
  Country: None (occurrence: None)
  Receive Date: 20100920
  Receipt Date: 20080311
  Transmission Date: 20110219
  Serious: Yes (Other)
  Sender: FDA-Public Use
  Company Number: US-ASTRAZENECA-2008UW01221

PATIENT
  Age: 654 Month
  Sex: Male
  Weight: 125.2 kg

DRUGS (19)
  1. SEROQUEL [Suspect]
     Indication: DEPRESSION
     Dosage: 100 MG - 300 MG
     Route: 048
     Dates: start: 20030201, end: 20050301
  2. SEROQUEL [Suspect]
     Indication: BIPOLAR I DISORDER
     Dosage: 100 MG - 300 MG
     Route: 048
     Dates: start: 20030201, end: 20050301
  3. SEROQUEL [Suspect]
     Indication: SCHIZOPHRENIA
     Dosage: 100 MG - 300 MG
     Route: 048
     Dates: start: 20030201, end: 20050301
  4. SEROQUEL [Suspect]
     Route: 048
     Dates: start: 20030503
  5. SEROQUEL [Suspect]
     Route: 048
     Dates: start: 20030503
  6. SEROQUEL [Suspect]
     Route: 048
     Dates: start: 20030503
  7. HYDROCHLOROTHIAZIDE [Concomitant]
     Indication: HYPERTENSION
     Dosage: 25 MG DAILY
     Dates: start: 20040301
  8. ASPIRIN [Concomitant]
     Indication: CORONARY ARTERY DISEASE
     Route: 048
     Dates: start: 20030311
  9. TYLENOL (CAPLET) [Concomitant]
     Indication: PAIN
     Dosage: 500 MG TO 1000 MG
     Route: 048
     Dates: start: 20030311
  10. FLONASE [Concomitant]
     Indication: RHINITIS ALLERGIC
     Dosage: 0.05 PERCENT ONE SPRAY EACH NOSTRIL TWO TIMES A DAY
     Route: 045
     Dates: start: 20030311
  11. TRIAMTERENE AND HYDROCHLOROTHIAZIDE [Concomitant]
     Dosage: 37.5/25 MG EVERYDAY
     Dates: start: 20030311
  12. LIPITOR [Concomitant]
     Route: 048
     Dates: start: 20030404
  13. GLUCOPHAGE [Concomitant]
     Dosage: 1000 MG TO 2000 MG
     Route: 048
     Dates: start: 20030919, end: 20041129
  14. IBUPROFEN [Concomitant]
     Indication: PAIN
     Dates: start: 20031027
  15. GLYBURIDE [Concomitant]
     Dates: start: 20040528
  16. GLUCOTROL [Concomitant]
     Dosage: 5 MG TO 30 MG
     Dates: start: 20040628
  17. AVANDIA [Concomitant]
     Indication: DIABETES MELLITUS
     Route: 048
     Dates: start: 20041130
  18. PLENDIL [Concomitant]
     Indication: HYPERTENSION
     Route: 048
     Dates: start: 20040424
  19. CLARITIN [Concomitant]
     Indication: RHINITIS ALLERGIC
     Route: 048
     Dates: start: 20050119

REACTIONS (3)
  - DIABETES MELLITUS [None]
  - HYPERGLYCAEMIA [None]
  - TYPE 1 DIABETES MELLITUS [None]
